FAERS Safety Report 5373238-7 (Version None)
Quarter: 2007Q2

REPORT INFORMATION
  Report Type: 
  Country: None (occurrence: None)
  Receive Date: 20070628
  Receipt Date: 20070622
  Transmission Date: 20071010
  Serious: Yes (Hospitalization)
  Sender: FDA-Public Use
  Company Number: PHRM2007FR00910

PATIENT
  Age: 74 Year
  Sex: Male

DRUGS (4)
  1. ALLOPURINOL [Suspect]
     Dosage: 1 DF, QD
     Route: 048
     Dates: end: 20070201
  2. ALLOPURINOL [Suspect]
     Dosage: UNK, NO TREATMENT
     Route: 048
     Dates: start: 20060101, end: 20060701
  3. ZANIDIP [Suspect]
     Dosage: UNK, UNK
     Route: 048
  4. VISKEN [Suspect]
     Dosage: UNK, UNK
     Route: 048
     Dates: end: 20070201

REACTIONS (1)
  - INTERSTITIAL LUNG DISEASE [None]
